FAERS Safety Report 10103644 (Version 1)
Quarter: 2014Q2

REPORT INFORMATION
  Report Type: Report from Study
  Country: US (occurrence: US)
  Receive Date: 20140424
  Receipt Date: 20140424
  Transmission Date: 20141212
  Serious: Yes (Hospitalization)
  Sender: FDA-Public Use
  Company Number: US-JNJFOC-20140416954

PATIENT
  Age: 78 Year
  Sex: Male
  Weight: 53 kg

DRUGS (23)
  1. ACYCLOVIR [Concomitant]
     Route: 048
  2. METOPROLOL [Concomitant]
     Indication: ATRIAL FIBRILLATION
     Route: 048
  3. DIGOXIN [Concomitant]
     Route: 048
  4. TERAZOSIN HYDROCHLORIDE [Concomitant]
     Route: 048
  5. MICRO-K [Concomitant]
     Route: 048
  6. CLOBETASOL [Concomitant]
  7. DEXAMETHASONE [Concomitant]
     Route: 048
  8. POMALIDOMIDE [Concomitant]
     Route: 048
  9. LORAZEPAM [Concomitant]
     Indication: ANXIETY
     Route: 048
  10. HALDOL [Concomitant]
     Indication: AGITATION
     Route: 048
  11. OXYCODONE [Concomitant]
     Indication: DYSPNOEA
     Route: 048
  12. OXYCODONE [Concomitant]
     Indication: DYSPNOEA
     Route: 048
  13. OXYCODONE [Concomitant]
     Indication: PAIN
     Route: 048
  14. OXYCODONE [Concomitant]
     Indication: PAIN
     Route: 048
  15. PROTONIX [Concomitant]
     Indication: PROPHYLAXIS
     Route: 048
  16. CYANOCOBALAMIN [Concomitant]
     Route: 030
  17. IMBRUVICA [Suspect]
     Indication: PLASMA CELL MYELOMA
     Route: 048
     Dates: start: 20140212, end: 20140330
  18. ASPIRIN [Concomitant]
     Route: 048
  19. FOLIC ACID [Concomitant]
     Route: 048
  20. IMODIUM [Concomitant]
     Indication: DIARRHOEA
     Route: 048
  21. MAGNESIUM OXIDE [Concomitant]
     Route: 048
  22. VITAMIN B COMPLEX [Concomitant]
     Route: 048
  23. PROCRIT (ERYTHROPOIETIN) [Concomitant]
     Indication: HAEMOGLOBIN DECREASED
     Route: 058

REACTIONS (2)
  - Hypercalcaemia [Recovering/Resolving]
  - Renal failure [Unknown]
